FAERS Safety Report 6982677-X (Version None)
Quarter: 2010Q3

REPORT INFORMATION
  Report Type: 
  Country: None (occurrence: None)
  Receive Date: 20100909
  Receipt Date: 20100824
  Transmission Date: 20110219
  Serious: Yes (Death)
  Sender: FDA-Public Use
  Company Number: 10-ADE-SU-0045-ACT

PATIENT

DRUGS (2)
  1. H P ACTHAR [Suspect]
     Indication: INFANTILE SPASMS
     Dates: start: 20050101
  2. VIGABATRIN [Concomitant]

REACTIONS (2)
  - CONDITION AGGRAVATED [None]
  - NEONATAL PNEUMONIA [None]
